FAERS Safety Report 9142302 (Version 1)
Quarter: 2013Q1

REPORT INFORMATION
  Report Type: Report from Study
  Country: US (occurrence: US)
  Receive Date: 20130305
  Receipt Date: 20130305
  Transmission Date: 20140127
  Serious: Yes (Hospitalization)
  Sender: FDA-Public Use
  Company Number: US-009507513-1302USA013283

PATIENT
  Age: 4 Year
  Sex: Male
  Weight: 21.4 kg

DRUGS (11)
  1. TEMOZOLOMIDE [Suspect]
     Indication: NEUROBLASTOMA
     Dosage: 85 MG, QD
     Route: 048
     Dates: start: 20130114, end: 20130118
  2. MLN8237 [Suspect]
     Indication: NEUROBLASTOMA
     Dosage: 40 MG, QD
     Route: 048
     Dates: start: 20130114, end: 20130120
  3. IRINOTECAN HYDROCHLORIDE [Suspect]
     Indication: NEUROBLASTOMA
     Dosage: 43 MG, QD
     Route: 042
     Dates: start: 20130114, end: 20130118
  4. PREDNISONE [Concomitant]
  5. DIPHENHYDRAMINE HYDROCHLORIDE [Concomitant]
     Dosage: UNK
     Dates: start: 20121126
  6. CEFIXIME [Concomitant]
     Dosage: UNK
     Dates: start: 20130112, end: 20130112
  7. ATOVAQUONE [Concomitant]
     Dosage: UNK
     Dates: start: 20121214
  8. ALBUTEROL [Concomitant]
     Dosage: UNK
     Dates: start: 20130103
  9. LIDOCAINE (+) PRILOCAINE [Concomitant]
     Dosage: UNK
     Dates: start: 20121017
  10. LOPERAMIDE HYDROCHLORIDE [Concomitant]
     Dosage: UNK
     Dates: start: 20130119
  11. NEULASTA [Concomitant]
     Dosage: UNK
     Dates: start: 20130121, end: 20130121

REACTIONS (2)
  - Dehydration [Recovered/Resolved]
  - Infection [Not Recovered/Not Resolved]
